FAERS Safety Report 6110569-7 (Version None)
Quarter: 2009Q1

REPORT INFORMATION
  Report Type: 
  Country: None (occurrence: None)
  Receive Date: 20090310
  Receipt Date: 20090305
  Transmission Date: 20090719
  Serious: Yes (Other)
  Sender: FDA-Public Use
  Company Number: US-ABBOTT-09P-163-0560897-00

PATIENT
  Sex: Female

DRUGS (9)
  1. HUMIRA [Suspect]
     Indication: RHEUMATOID ARTHRITIS
     Route: 058
     Dates: start: 20061201, end: 20090101
  2. WELLBUTRIN XL [Concomitant]
     Indication: DEPRESSION
  3. NORVASC [Concomitant]
     Indication: HYPERTENSION
     Route: 048
  4. BPM PSEUDO [Concomitant]
     Indication: HYPERSENSITIVITY
     Dosage: 6/45 MG
     Route: 048
  5. CELEXA [Concomitant]
     Indication: ANXIETY
     Route: 050
  6. RIDAURA [Concomitant]
     Indication: RHEUMATOID ARTHRITIS
  7. RELAFEN [Concomitant]
     Indication: RHEUMATOID ARTHRITIS
     Dosage: UNKNOWN
     Route: 048
  8. DARVOCETT [Concomitant]
     Indication: PAIN
     Dosage: UNKNOWN
     Route: 048
  9. TYLENOL ARTHRITIS STRENGTH [Concomitant]
     Indication: PAIN
     Dosage: UNKNOWN
     Route: 048

REACTIONS (5)
  - ARTERIAL OCCLUSIVE DISEASE [None]
  - COUGH [None]
  - DYSPNOEA [None]
  - FATIGUE [None]
  - NASAL CONGESTION [None]
